FAERS Safety Report 4936638-2 (Version None)
Quarter: 2006Q1

REPORT INFORMATION
  Report Type: 
  Country: None (occurrence: None)
  Receive Date: 20060307
  Receipt Date: 20060202
  Transmission Date: 20060701
  Serious: Yes (Other)
  Sender: FDA-Public Use
  Company Number: JP-NOVOPROD-250603

PATIENT
  Age: 53 Year
  Sex: Female
  Weight: 41 kg

DRUGS (3)
  1. NOVOLIN R [Suspect]
     Indication: DIABETES MELLITUS
     Dosage: 20 U, UNK
     Route: 058
     Dates: start: 20060120, end: 20060202
  2. NOVOLIN N [Suspect]
     Indication: DIABETES MELLITUS
     Dosage: 4 U, UNK
     Dates: start: 20060120
  3. HUMULIN R [Concomitant]

REACTIONS (4)
  - CONDITION AGGRAVATED [None]
  - HEPATIC FUNCTION ABNORMAL [None]
  - LIVER DISORDER [None]
  - PERIANAL ABSCESS [None]
